FAERS Safety Report 14896338 (Version 1)
Quarter: 2018Q2

REPORT INFORMATION
  Report Type: Spontaneous
  Country: JP (occurrence: JP)
  Receive Date: 20180515
  Receipt Date: 20180515
  Transmission Date: 20180711
  Serious: Yes (Hospitalization, Other)
  Sender: FDA-Public Use
  Company Number: JP-SA-2018SA135893

PATIENT
  Age: 50 Year
  Sex: Male

DRUGS (2)
  1. DOCETAXEL. [Suspect]
     Active Substance: DOCETAXEL
     Indication: LUNG ADENOCARCINOMA
     Route: 065
  2. DOCETAXEL. [Suspect]
     Active Substance: DOCETAXEL
     Indication: LUNG ADENOCARCINOMA
     Route: 065

REACTIONS (7)
  - Petechiae [Recovered/Resolved]
  - Metastases to central nervous system [Unknown]
  - Disease progression [Unknown]
  - Henoch-Schonlein purpura [Recovered/Resolved]
  - Gastrointestinal wall thickening [Unknown]
  - Abdominal pain upper [Recovered/Resolved]
  - Haemorrhagic erosive gastritis [Unknown]
